FAERS Safety Report 11254992 (Version 1)
Quarter: 2015Q3

REPORT INFORMATION
  Report Type: Spontaneous
  Country: US (occurrence: US)
  Receive Date: 20150709
  Receipt Date: 20150709
  Transmission Date: 20151125
  Serious: Yes (Other)
  Sender: FDA-Public Use
  Company Number: US-AKORN PHARMACEUTICALS-2015AKN00364

PATIENT
  Sex: Male
  Weight: 75.28 kg

DRUGS (3)
  1. MYORISAN [Suspect]
     Active Substance: ISOTRETINOIN
     Indication: ACNE
     Dosage: 40 MG, 1X/DAY
     Route: 048
     Dates: start: 201502, end: 20150615
  2. UNSPECIFIED ANTIHISTAMINES [Concomitant]
  3. UNSPECIFIED EYE DROPS [Concomitant]
     Active Substance: UNSPECIFIED INGREDIENT
     Route: 047

REACTIONS (1)
  - Loss of consciousness [Recovered/Resolved]
